FAERS Safety Report 14364250 (Version 1)
Quarter: 2018Q1

REPORT INFORMATION
  Report Type: Spontaneous
  Country: BR (occurrence: BR)
  Receive Date: 20180108
  Receipt Date: 20180108
  Transmission Date: 20180509
  Serious: Yes (Hospitalization, Other)
  Sender: FDA-Public Use
  Company Number: PHHY2018BR001563

PATIENT
  Sex: Female

DRUGS (2)
  1. COSENTYX [Suspect]
     Active Substance: SECUKINUMAB
     Dosage: 150 MG, UNK (SIXTH DOSE)
     Route: 065
  2. COSENTYX [Suspect]
     Active Substance: SECUKINUMAB
     Indication: ANKYLOSING SPONDYLITIS
     Dosage: 150 MG, UNK
     Route: 065

REACTIONS (7)
  - Muscle spasms [Unknown]
  - Pain [Not Recovered/Not Resolved]
  - Pyelonephritis [Unknown]
  - Renal abscess [Unknown]
  - Pyrexia [Not Recovered/Not Resolved]
  - Acarodermatitis [Unknown]
  - Infection parasitic [Unknown]
